FAERS Safety Report 5343892-4 (Version None)
Quarter: 2007Q2

REPORT INFORMATION
  Report Type: 
  Country: None (occurrence: None)
  Receive Date: 20070531
  Receipt Date: 20070531
  Transmission Date: 20071010
  Serious: Yes (Hospitalization)
  Sender: FDA-Public Use
  Company Number: None

PATIENT
  Age: 48 Year
  Sex: Male

DRUGS (1)
  1. LITHIUM CARBONATE [Suspect]
     Indication: BIPOLAR I DISORDER
     Dosage: 450MG HS PO
     Route: 048
     Dates: start: 19960403, end: 20070405

REACTIONS (4)
  - BLOOD CREATININE DECREASED [None]
  - CONFUSIONAL STATE [None]
  - CONVULSION [None]
  - TREMOR [None]
